FAERS Safety Report 7555372-6 (Version None)
Quarter: 2011Q2

REPORT INFORMATION
  Report Type: 
  Country: None (occurrence: None)
  Receive Date: 20110617
  Receipt Date: 20110608
  Transmission Date: 20111010
  Serious: Yes (Hospitalization, Other)
  Sender: FDA-Public Use
  Company Number: US-NAPPMUNDI-USA-2011-0069756

PATIENT
  Sex: Female

DRUGS (1)
  1. OXYCONTIN [Suspect]
     Indication: PRODUCT USED FOR UNKNOWN INDICATION
     Dosage: 60 MG, TID

REACTIONS (11)
  - MUSCLE SPASMS [None]
  - MUSCLE TIGHTNESS [None]
  - BRONCHITIS [None]
  - OXYGEN SATURATION ABNORMAL [None]
  - NAUSEA [None]
  - CHRONIC OBSTRUCTIVE PULMONARY DISEASE [None]
  - STRESS [None]
  - FEELING OF BODY TEMPERATURE CHANGE [None]
  - PNEUMONIA [None]
  - DRUG WITHDRAWAL SYNDROME [None]
  - VOMITING [None]
